FAERS Safety Report 10388962 (Version 1)
Quarter: 2014Q1

REPORT INFORMATION
  Report Type: Spontaneous
  Country: US (occurrence: None)
  Receive Date: 20140306
  Receipt Date: 20140306
  Transmission Date: 20141002
  Serious: Yes (Hospitalization, Other)
  Sender: FDA-Public Use
  Company Number: 163-21880-13032221

PATIENT
  Age: 74 Year
  Sex: Male
  Weight: 87.09 kg

DRUGS (7)
  1. REVLIMID (LENALIDOMIDE) (15 MILLIGRAM, CAPSULES) [Suspect]
     Indication: PLASMA CELL MYELOMA
     Route: 048
     Dates: start: 201012
  2. COUMADIN (WARFARIN SODIUM) (TABLETS) [Concomitant]
  3. FOSRENOL (LANTHANUM CARBONATE) [Concomitant]
  4. KEFLEX (CEFALEXIN MONOHYDRATE) (CAPSULES) [Concomitant]
  5. LANTUS (INSULIN GLARGINE) [Concomitant]
  6. LATANOPROST (LATANOPROST) [Concomitant]
  7. MAGNESIUM (MAGNESIUM) (CAPSULES) [Concomitant]

REACTIONS (5)
  - Pulmonary embolism [None]
  - Thrombosis [None]
  - Cataract [None]
  - Plasma cell myeloma [None]
  - Blood count abnormal [None]
